FAERS Safety Report 7427581 (Version 14)
Quarter: 2014Q2

REPORT INFORMATION
  Report Type: Report from Study
  Country: BR (occurrence: BR)
  Receive Date: 20100622
  Receipt Date: 20140519
  Transmission Date: 20141212
  Serious: Yes (Hospitalization, Other)
  Sender: FDA-Public Use
  Company Number: BR-ROCHE-634811

PATIENT
  Age: 61 Year
  Sex: Female
  Weight: 65 kg

DRUGS (25)
  1. MABTHERA [Suspect]
     Indication: RHEUMATOID ARTHRITIS
     Dosage: DOSE: 100 MG/ML. FORM: INFUSIONS
     Route: 042
     Dates: start: 20080815, end: 20080830
  2. MABTHERA [Suspect]
     Route: 042
     Dates: start: 2009, end: 2009
  3. MABTHERA [Suspect]
     Dosage: MOST RECENT INFUSION ON 07/NOV/2013.
     Route: 042
  4. MABTHERA [Suspect]
     Dosage: LAST INFUSION ON 07/MAY/2014
     Route: 042
  5. ACTEMRA [Suspect]
     Indication: RHEUMATOID ARTHRITIS
     Route: 042
  6. ACTEMRA [Suspect]
     Dosage: DOSE: 8MG/KG (530 MG). FORM: INFUSION
     Route: 042
  7. ACTEMRA [Suspect]
     Route: 042
  8. ACTEMRA [Suspect]
     Route: 042
  9. ACTEMRA [Suspect]
     Route: 042
  10. ACTEMRA [Suspect]
     Route: 042
  11. ACTEMRA [Suspect]
     Route: 042
  12. ACTEMRA [Suspect]
     Route: 042
  13. ACTEMRA [Suspect]
     Route: 042
     Dates: start: 20110915, end: 20110928
  14. ACTEMRA [Suspect]
     Route: 042
     Dates: start: 20111013, end: 20111013
  15. ACTEMRA [Suspect]
     Route: 065
  16. PARACETAMOL [Concomitant]
  17. PRELONE [Concomitant]
     Indication: RHEUMATOID ARTHRITIS
  18. MAREVAN [Concomitant]
  19. FELDENE [Concomitant]
     Indication: RHEUMATOID ARTHRITIS
     Dosage: FREQUENCY: 1 TABLET DAILY
     Route: 048
  20. DORFLEX [Concomitant]
     Indication: ANALGESIC THERAPY
     Dosage: FREQUENCY: 3 TABLETS DAILY
     Route: 048
  21. FOLIN [Concomitant]
     Route: 048
  22. LOSARTAN [Concomitant]
     Indication: HYPERTENSION
     Route: 048
  23. METILPREDNISOLONA [Concomitant]
     Route: 048
  24. METHOTREXATE [Concomitant]
     Route: 048
  25. OMEGA 3 [Concomitant]

REACTIONS (25)
  - Thrombosis [Not Recovered/Not Resolved]
  - Rheumatoid arthritis [Not Recovered/Not Resolved]
  - Hypercholesterolaemia [Not Recovered/Not Resolved]
  - Rheumatoid arthritis [Not Recovered/Not Resolved]
  - Urticaria [Not Recovered/Not Resolved]
  - Pruritus [Recovered/Resolved]
  - Pain in extremity [Not Recovered/Not Resolved]
  - Peripheral swelling [Not Recovered/Not Resolved]
  - Joint warmth [Not Recovered/Not Resolved]
  - Pallor [Not Recovered/Not Resolved]
  - Skin atrophy [Not Recovered/Not Resolved]
  - Ocular hyperaemia [Not Recovered/Not Resolved]
  - Malaise [Not Recovered/Not Resolved]
  - Hypertension [Not Recovered/Not Resolved]
  - Pain [Not Recovered/Not Resolved]
  - Swelling [Not Recovered/Not Resolved]
  - Therapeutic response decreased [Not Recovered/Not Resolved]
  - Blood cholesterol increased [Unknown]
  - Skin discolouration [Recovered/Resolved]
  - Blood pressure fluctuation [Recovered/Resolved]
  - Asthma [Recovered/Resolved]
  - Anxiety [Not Recovered/Not Resolved]
  - Depression [Unknown]
  - Fibromyalgia [Unknown]
  - Burning sensation [Unknown]
